FAERS Safety Report 7088738-1 (Version None)
Quarter: 2010Q4

REPORT INFORMATION
  Report Type: 
  Country: None (occurrence: None)
  Receive Date: 20101108
  Receipt Date: 20101027
  Transmission Date: 20110411
  Serious: Yes (Hospitalization)
  Sender: FDA-Public Use
  Company Number: US-US-EMD SERONO, INC.-7024884

PATIENT
  Sex: Female
  Weight: 54 kg

DRUGS (1)
  1. REBIF [Suspect]
     Indication: PRODUCT USED FOR UNKNOWN INDICATION
     Dates: start: 20050623, end: 20100927

REACTIONS (11)
  - ABNORMAL BEHAVIOUR [None]
  - CHILLS [None]
  - CONTUSION [None]
  - EYE INFECTION STAPHYLOCOCCAL [None]
  - FALL [None]
  - INJECTION SITE REACTION [None]
  - MALAISE [None]
  - MUSCULAR WEAKNESS [None]
  - MYALGIA [None]
  - RIB FRACTURE [None]
  - WEIGHT ABNORMAL [None]
